FAERS Safety Report 6864193-9 (Version None)
Quarter: 2010Q3

REPORT INFORMATION
  Report Type: 
  Country: None (occurrence: None)
  Receive Date: 20100721
  Receipt Date: 20080322
  Transmission Date: 20110219
  Serious: No
  Sender: FDA-Public Use
  Company Number: US-PFIZER INC-2008026900

PATIENT
  Sex: Male
  Weight: 63.2 kg

DRUGS (11)
  1. CHANTIX [Suspect]
     Indication: SMOKING CESSATION THERAPY
     Dates: start: 20070101
  2. PANADEINE CO [Suspect]
     Indication: INSOMNIA
     Dates: start: 20080301
  3. PAXIL [Concomitant]
  4. GABAPENTIN [Concomitant]
  5. TRICOR [Concomitant]
  6. ZETIA [Concomitant]
  7. LISINOPRIL [Concomitant]
  8. REQUIP [Concomitant]
  9. METFORMIN [Concomitant]
  10. HUMULIN N [Concomitant]
  11. HUMALOG [Concomitant]

REACTIONS (8)
  - ABNORMAL DREAMS [None]
  - BLOOD PRESSURE INCREASED [None]
  - COLD SWEAT [None]
  - COUGH [None]
  - DIARRHOEA [None]
  - DRUG DOSE OMISSION [None]
  - DRUG INEFFECTIVE [None]
  - INSOMNIA [None]
